FAERS Safety Report 7815763-2 (Version None)
Quarter: 2011Q4

REPORT INFORMATION
  Report Type: 
  Country: None (occurrence: None)
  Receive Date: 20111014
  Receipt Date: 20111003
  Transmission Date: 20120403
  Serious: Yes (Hospitalization)
  Sender: FDA-Public Use
  Company Number: FR-NOVOPROD-336728

PATIENT

DRUGS (6)
  1. DIAMICRON [Concomitant]
  2. AMLODIPINE BESYLATE [Concomitant]
  3. METFORMIN HCL [Concomitant]
  4. CRESTOR [Concomitant]
  5. VICTOZA [Suspect]
     Indication: PRODUCT USED FOR UNKNOWN INDICATION
     Dosage: 1.8 MG, QD
     Route: 058
     Dates: start: 20100101
  6. COVERSYL                           /00790702/ [Concomitant]

REACTIONS (1)
  - PANCREATITIS [None]
